FAERS Safety Report 19068889 (Version 1)
Quarter: 2021Q1

REPORT INFORMATION
  Report Type: Spontaneous
  Country: US (occurrence: US)
  Receive Date: 20210329
  Receipt Date: 20210329
  Transmission Date: 20210420
  Serious: No
  Sender: FDA-Public Use
  Company Number: US-PFIZER INC-2021243875

PATIENT
  Age: 63 Year
  Sex: Male

DRUGS (11)
  1. XELJANZ XR [Suspect]
     Active Substance: TOFACITINIB CITRATE
     Indication: PSORIATIC ARTHROPATHY
     Dosage: 11 MG, DAILY
     Route: 048
     Dates: start: 201912
  2. GLUCOSAMINE HCL [Concomitant]
     Active Substance: GLUCOSAMINE
     Dosage: 1000 MG
  3. VITAMIN B [Concomitant]
     Active Substance: VITAMIN B
     Dosage: 0.4 MG (VITAMIN B?100 COMPLEX 0.4 MG TABLET)
  4. BIOTIN [Concomitant]
     Active Substance: BIOTIN
     Dosage: 10 MG
  5. HYDROCODONE/ACETAMINOPHEN [Concomitant]
     Active Substance: ACETAMINOPHEN\HYDROCODONE
     Dosage: UNK
  6. TIZANIDINE HCL [Concomitant]
     Active Substance: TIZANIDINE HYDROCHLORIDE
     Dosage: 2 MG
  7. OTREXUP [Concomitant]
     Active Substance: METHOTREXATE
     Dosage: 0.4 ML (OTREXUP 10MG/0.4ML AUTO INJCT)
  8. LYRICA [Concomitant]
     Active Substance: PREGABALIN
     Dosage: 100 MG
  9. VITAMIN D3 [Concomitant]
     Active Substance: CHOLECALCIFEROL
     Dosage: 100 UG
  10. IBUPROFEN. [Concomitant]
     Active Substance: IBUPROFEN
     Dosage: 100 MG (IBUPROFEN 100 MG TAB CHEW)
  11. FIBER [Concomitant]
     Active Substance: PSYLLIUM HUSK
     Dosage: 0.52 G

REACTIONS (1)
  - Pain [Unknown]
